FAERS Safety Report 18811927 (Version 1)
Quarter: 2021Q1

REPORT INFORMATION
  Report Type: Spontaneous
  Country: IT (occurrence: IT)
  Receive Date: 20210130
  Receipt Date: 20210130
  Transmission Date: 20210419
  Serious: Yes (Other)
  Sender: FDA-Public Use
  Company Number: IT-ACCORD-215765

PATIENT
  Age: 53 Year
  Sex: Female
  Weight: 70 kg

DRUGS (2)
  1. PRAVASTATIN. [Suspect]
     Active Substance: PRAVASTATIN
     Indication: DYSLIPIDAEMIA
  2. ROSUVASTATIN. [Suspect]
     Active Substance: ROSUVASTATIN
     Indication: PRODUCT USED FOR UNKNOWN INDICATION

REACTIONS (1)
  - Muscle spasms [Unknown]

NARRATIVE: CASE EVENT DATE: 20200201
